FAERS Safety Report 10366570 (Version 1)
Quarter: 2014Q3

REPORT INFORMATION
  Report Type: Spontaneous
  Country: DE (occurrence: None)
  Receive Date: 20140804
  Receipt Date: 20140804
  Transmission Date: 20150326
  Serious: Yes (Other)
  Sender: FDA-Public Use
  Company Number: 2014COR00037

PATIENT
  Age: 25 Year
  Sex: Female

DRUGS (2)
  1. CITALOPRAM [Suspect]
     Active Substance: CITALOPRAM HYDROBROMIDE
     Dosage: 20 MG, UNK, UNKNOWN
  2. ALCOHOL. [Suspect]
     Active Substance: ALCOHOL

REACTIONS (2)
  - Alcohol interaction [None]
  - Dissociative amnesia [None]
